FAERS Safety Report 10055899 (Version 6)
Quarter: 2014Q3

REPORT INFORMATION
  Report Type: Spontaneous
  Country: DE (occurrence: None)
  Receive Date: 20140401
  Receipt Date: 20140922
  Transmission Date: 20150326
  Serious: Yes (Hospitalization)
  Sender: FDA-Public Use
  Company Number: 2014DE003093

PATIENT
  Age: 75 Year
  Sex: Female
  Weight: 65 kg

DRUGS (12)
  1. HYDROCHLOROTHIAZID (HYDROCHLOROTHIAZID) [Concomitant]
  2. BISOPROLOL (BISOPROLOL FUMARATE) [Concomitant]
  3. VOLTAREN [Concomitant]
     Active Substance: DICLOFENAC SODIUM
  4. RAMIPRIL (RAMIPRIL) [Concomitant]
     Active Substance: RAMIPRIL
  5. CERTOPARIN SODIUM (CERTOPARIN SODIUM) [Concomitant]
  6. IBUPROFEN (IBUPROFEN) [Concomitant]
     Active Substance: IBUPROFEN
  7. DICLOFENAC (DICLOFENAC SODIUM) [Concomitant]
  8. OMEPRAZOL (OMEPRAZOLE) [Concomitant]
  9. FUROSEMID (FUROSEMIDE) [Concomitant]
     Active Substance: FUROSEMIDE
  10. ALLOPURINOL (ALLOPURINOL) [Concomitant]
     Active Substance: ALLOPURINOL
  11. KALINOR (CITRIC ACID, POTASSIUM BICARBONATE, POTASSIUM CITRATE) [Concomitant]
  12. PONATINIB [Suspect]
     Active Substance: PONATINIB
     Indication: CHRONIC MYELOID LEUKAEMIA
     Route: 048
     Dates: start: 20110502, end: 20140316

REACTIONS (19)
  - Peripheral arterial occlusive disease [None]
  - Traumatic intracranial haemorrhage [None]
  - Blood pressure increased [None]
  - Cardiopulmonary failure [None]
  - Intermittent claudication [None]
  - Foot amputation [None]
  - Bundle branch block right [None]
  - Psychomotor hyperactivity [None]
  - Peripheral ischaemia [None]
  - Fatigue [None]
  - Peripheral artery stenosis [None]
  - Malignant neoplasm progression [None]
  - Arthralgia [None]
  - Keratitis [None]
  - Chronic myeloid leukaemia [None]
  - Acute myocardial infarction [None]
  - Femoral artery occlusion [None]
  - Necrosis ischaemic [None]
  - Tremor [None]

NARRATIVE: CASE EVENT DATE: 20140310
